FAERS Safety Report 9037183 (Version 1)
Quarter: 2013Q1

REPORT INFORMATION
  Report Type: Spontaneous
  Country: US (occurrence: None)
  Receive Date: 20130110
  Receipt Date: 20130110
  Transmission Date: 20140127
  Serious: Yes (Hospitalization, Other)
  Sender: FDA-Public Use
  Company Number: 2012PROUSA02443

PATIENT
  Age: 70 Year
  Sex: Male
  Weight: 73.2 kg

DRUGS (3)
  1. PROVENGE (SIPULEUCEL-T) SUSPENSION, 250ML [Suspect]
     Indication: PROSTATE CANCER METASTATIC
     Dosage: SINGLE
     Route: 042
     Dates: start: 20120426, end: 20120426
  2. LEUPROLIDE (LEUPROLIDE) [Suspect]
  3. ABIRATERONE ACETATE [Suspect]

REACTIONS (18)
  - Pneumonia [None]
  - Bone disorder [None]
  - Condition aggravated [None]
  - Blood pressure decreased [None]
  - Night sweats [None]
  - Musculoskeletal pain [None]
  - Decreased appetite [None]
  - Weight decreased [None]
  - Ecchymosis [None]
  - Fatigue [None]
  - Cachexia [None]
  - Asthenia [None]
  - Memory impairment [None]
  - Muscular weakness [None]
  - Pain in extremity [None]
  - Mental status changes [None]
  - Adrenal insufficiency [None]
  - Metastasis [None]
